FAERS Safety Report 17518251 (Version 1)
Quarter: 2020Q1

REPORT INFORMATION
  Report Type: Spontaneous
  Country: US (occurrence: US)
  Receive Date: 20200309
  Receipt Date: 20200309
  Transmission Date: 20200409
  Serious: No
  Sender: FDA-Public Use
  Company Number: US-BAUSCH-BL-2020-004165

PATIENT
  Age: 75 Year
  Sex: Female

DRUGS (2)
  1. TRULANCE [Suspect]
     Active Substance: PLECANATIDE
     Indication: DOLICHOCOLON
     Dosage: STARTED DURING THE WEEK OF 27/JAN/2020, BY MOUTH
     Route: 048
     Dates: start: 202001, end: 202002
  2. TRULANCE [Suspect]
     Active Substance: PLECANATIDE
     Indication: CONSTIPATION

REACTIONS (11)
  - Eating disorder [Unknown]
  - Product dose omission [Unknown]
  - Abdominal pain upper [Unknown]
  - Constipation [Not Recovered/Not Resolved]
  - Insomnia [Unknown]
  - Abdominal distension [Unknown]
  - Asthenia [Unknown]
  - Weight decreased [Unknown]
  - Flatulence [Unknown]
  - Patient dissatisfaction with treatment [Unknown]
  - Abdominal discomfort [Unknown]

NARRATIVE: CASE EVENT DATE: 2020
